FAERS Safety Report 8881195 (Version 2)
Quarter: 2012Q4

REPORT INFORMATION
  Report Type: Report from Study
  Country: FR (occurrence: FR)
  Receive Date: 20121031
  Receipt Date: 20121115
  Transmission Date: 20130627
  Serious: Yes (Hospitalization)
  Sender: FDA-Public Use
  Company Number: FR-CELGENEUS-056-50794-12080907

PATIENT
  Age: 72 Year
  Sex: Female

DRUGS (3)
  1. VIDAZA [Suspect]
     Indication: MDS
     Route: 058
     Dates: start: 20120628, end: 20120704
  2. VIDAZA [Suspect]
     Route: 058
     Dates: start: 20120922, end: 20120926
  3. SYMBICORT [Concomitant]
     Indication: COPD
     Route: 065

REACTIONS (3)
  - Febrile neutropenia [Not Recovered/Not Resolved]
  - Lung disorder [Recovered/Resolved]
  - Febrile neutropenia [Recovered/Resolved]
